FAERS Safety Report 6013038-8 (Version None)
Quarter: 2008Q4

REPORT INFORMATION
  Report Type: 
  Country: None (occurrence: None)
  Receive Date: 20081219
  Receipt Date: 20081211
  Transmission Date: 20090506
  Serious: Yes (Other)
  Sender: FDA-Public Use
  Company Number: CH-BAXTER-2008BH013745

PATIENT
  Age: 12 Year
  Sex: Male
  Weight: 35 kg

DRUGS (3)
  1. GAMMAGARD LIQUID [Suspect]
     Indication: IMMUNODEFICIENCY COMMON VARIABLE
     Route: 042
     Dates: start: 20080915, end: 20080915
  2. GAMMAGARD LIQUID [Suspect]
     Route: 042
     Dates: start: 20080915, end: 20080915
  3. GAMMAGARD LIQUID [Suspect]
     Route: 042
     Dates: start: 20081002, end: 20081002

REACTIONS (4)
  - CHILLS [None]
  - DISCOMFORT [None]
  - PYREXIA [None]
  - TREMOR [None]
